FAERS Safety Report 10404376 (Version 2)
Quarter: 2014Q3

REPORT INFORMATION
  Report Type: Spontaneous
  Country: JP (occurrence: JP)
  Receive Date: 20140823
  Receipt Date: 20140823
  Transmission Date: 20150326
  Serious: Yes (Hospitalization, Other)
  Sender: FDA-Public Use
  Company Number: PHJP2014JP000486

PATIENT
  Age: 65 Year
  Sex: Male
  Weight: 59 kg

DRUGS (7)
  1. NATRIX [Suspect]
     Active Substance: INDAPAMIDE
     Indication: HYPERTENSION
     Dosage: 1 MG, DAILY
     Route: 048
     Dates: start: 20131231, end: 20140121
  2. NORVASC [Concomitant]
     Active Substance: AMLODIPINE BESYLATE
     Dosage: UNK UKN, UNK
     Route: 048
  3. MAGMITT [Concomitant]
     Active Substance: MAGNESIUM OXIDE
     Dosage: UNK UKN, UNK
     Route: 048
  4. DIOVAN [Concomitant]
     Active Substance: VALSARTAN
     Dosage: UNK UKN, UNK
     Route: 048
  5. DEPAS [Concomitant]
     Active Substance: ETIZOLAM
     Dosage: UNK UKN, UNK
     Route: 048
  6. ATELEC [Concomitant]
     Active Substance: CILNIDIPINE
     Dosage: UNK UKN, UNK
     Route: 048
  7. TEGRETOL [Suspect]
     Active Substance: CARBAMAZEPINE
     Indication: TRIGEMINAL NEURALGIA
     Dosage: 100 MG, BID
     Route: 048
     Dates: start: 20140115, end: 20140121

REACTIONS (7)
  - Malaise [Recovered/Resolved]
  - Palpitations [Recovered/Resolved]
  - Blood creatine phosphokinase increased [Recovering/Resolving]
  - Dyspnoea [Recovered/Resolved]
  - Inappropriate antidiuretic hormone secretion [Recovered/Resolved]
  - Liver disorder [Recovering/Resolving]
  - Hyponatraemia [Recovered/Resolved]

NARRATIVE: CASE EVENT DATE: 20140120
